FAERS Safety Report 10345731 (Version 1)
Quarter: 2014Q3

REPORT INFORMATION
  Report Type: Spontaneous
  Country: FR (occurrence: FR)
  Receive Date: 20140728
  Receipt Date: 20140728
  Transmission Date: 20150326
  Serious: Yes (Hospitalization)
  Sender: FDA-Public Use
  Company Number: FR-GLAXOSMITHKLINE-B1016240A

PATIENT
  Age: 41 Year
  Sex: Female

DRUGS (2)
  1. FORTUM [Suspect]
     Active Substance: CEFTAZIDIME
     Indication: PRIMARY CILIARY DYSKINESIA
     Route: 042
     Dates: start: 201310
  2. CLAVENTIN [Suspect]
     Active Substance: CLAVULANATE POTASSIUM\TICARCILLIN DISODIUM
     Indication: PRIMARY CILIARY DYSKINESIA
     Route: 042
     Dates: start: 201310

REACTIONS (4)
  - Bronchospasm [Recovered/Resolved]
  - Urticaria [Recovered/Resolved]
  - Chest discomfort [Recovered/Resolved]
  - Painful respiration [Recovered/Resolved]

NARRATIVE: CASE EVENT DATE: 201310
